FAERS Safety Report 7549359-7 (Version None)
Quarter: 2011Q2

REPORT INFORMATION
  Report Type: 
  Country: None (occurrence: None)
  Receive Date: 20110615
  Receipt Date: 20030428
  Transmission Date: 20111010
  Serious: Yes (Hospitalization)
  Sender: FDA-Public Use
  Company Number: PHEH2003US03555

PATIENT
  Sex: Female

DRUGS (7)
  1. COZAAR [Concomitant]
  2. KLOR-CON [Concomitant]
  3. TRIAMTERENE AND HYDROCHLOROTHIAZID ^HARRIS^ [Concomitant]
  4. EXELON [Suspect]
     Indication: DEMENTIA ALZHEIMER'S TYPE
     Dosage: 1.5 MG, BID
     Route: 048
     Dates: start: 20021201
  5. RISPERDAL [Concomitant]
  6. WARFARIN SODIUM [Concomitant]
  7. GLUCOTROL [Concomitant]

REACTIONS (4)
  - HIP FRACTURE [None]
  - CEREBROVASCULAR ACCIDENT [None]
  - FALL [None]
  - INCOHERENT [None]
